FAERS Safety Report 7129126-9 (Version None)
Quarter: 2010Q4

REPORT INFORMATION
  Report Type: 
  Country: None (occurrence: None)
  Receive Date: 20101130
  Receipt Date: 20101124
  Transmission Date: 20110411
  Serious: Yes (Other)
  Sender: FDA-Public Use
  Company Number: BR-PFIZER INC-2010157688

PATIENT
  Age: 38 Year
  Sex: Female
  Weight: 53 kg

DRUGS (2)
  1. CHAMPIX [Suspect]
     Indication: TOBACCO USER
     Dosage: UNK
     Route: 048
     Dates: start: 20101028
  2. TRIQUILAR [Concomitant]
     Indication: CONTRACEPTION
     Dosage: UNK
     Dates: start: 20100901

REACTIONS (5)
  - COORDINATION ABNORMAL [None]
  - HYPERTENSION [None]
  - NERVOUSNESS [None]
  - SOMNAMBULISM [None]
  - WITHDRAWAL SYNDROME [None]
